FAERS Safety Report 22952846 (Version 2)
Quarter: 2023Q4

REPORT INFORMATION
  Report Type: Spontaneous
  Country: AT (occurrence: AT)
  Receive Date: 20230918
  Receipt Date: 20231002
  Transmission Date: 20240109
  Serious: Yes (Life-Threatening, Hospitalization, Other)
  Sender: FDA-Public Use
  Company Number: AT-AGUETTANT-2021000339

PATIENT
  Sex: Male
  Weight: 3.4 kg

DRUGS (5)
  1. EPINEPHRINE [Suspect]
     Active Substance: EPINEPHRINE
     Indication: Bradycardia
     Dosage: 30 MICROGRAM (9 MCG/KG)
  2. EPINEPHRINE [Suspect]
     Active Substance: EPINEPHRINE
     Dosage: 100 MICROGRAM (29 MCG/KG)
  3. CALCIUM LACTATE [Suspect]
     Active Substance: CALCIUM LACTATE
     Indication: Ventricular fibrillation
     Dosage: 5 MILLILITER
  4. SODIUM BICARBONATE [Suspect]
     Active Substance: SODIUM BICARBONATE
     Indication: Ventricular fibrillation
     Dosage: 5 MILLILITER
  5. MAGNESIUM GLUCONATE [Suspect]
     Active Substance: MAGNESIUM GLUCONATE
     Indication: Ventricular fibrillation
     Dosage: 5 MILLILITER

REACTIONS (4)
  - Electrocardiogram QT prolonged [Recovered/Resolved]
  - Ventricular fibrillation [Recovered/Resolved]
  - Hypoxic ischaemic encephalopathy neonatal [Recovered/Resolved]
  - Drug ineffective [Unknown]
